FAERS Safety Report 8617010-0 (Version None)
Quarter: 2012Q3

REPORT INFORMATION
  Report Type: 
  Country: None (occurrence: None)
  Receive Date: 20120823
  Receipt Date: 20120814
  Transmission Date: 20120928
  Serious: No
  Sender: FDA-Public Use
  Company Number: US-009507513-1208USA006812

PATIENT

DRUGS (3)
  1. REBETOL [Suspect]
     Dosage: UNK
     Route: 048
  2. PEG-INTRON [Suspect]
     Route: 058
  3. VICTRELIS [Suspect]
     Indication: HEPATITIS C
     Dosage: 4 DF, TID
     Route: 048

REACTIONS (2)
  - NAUSEA [None]
  - PRODUCT TASTE ABNORMAL [None]
